FAERS Safety Report 21571468 (Version 2)
Quarter: 2022Q4

REPORT INFORMATION
  Report Type: Spontaneous
  Country: US (occurrence: None)
  Receive Date: 20221109
  Receipt Date: 20221220
  Transmission Date: 20230112
  Serious: No
  Sender: FDA-Public Use
  Company Number: 2022A345817

PATIENT
  Age: 28525 Day
  Sex: Male
  Weight: 69.4 kg

DRUGS (1)
  1. BYDUREON BCISE [Suspect]
     Active Substance: EXENATIDE
     Indication: Diabetes mellitus
     Route: 065

REACTIONS (12)
  - Glycosylated haemoglobin abnormal [Unknown]
  - Appetite disorder [Unknown]
  - Blood glucose increased [Unknown]
  - Glaucoma [Unknown]
  - Memory impairment [Unknown]
  - Decreased appetite [Unknown]
  - Dyspepsia [Unknown]
  - Abdominal distension [Unknown]
  - Constipation [Unknown]
  - Device delivery system issue [Unknown]
  - Drug ineffective [Unknown]
  - Device leakage [Unknown]

NARRATIVE: CASE EVENT DATE: 20221011
